FAERS Safety Report 15309264 (Version 2)
Quarter: 2018Q4

REPORT INFORMATION
  Report Type: Spontaneous
  Country: CA (occurrence: CA)
  Receive Date: 20180823
  Receipt Date: 20180921
  Transmission Date: 20190204
  Serious: No
  Sender: FDA-Public Use
  Company Number: CA-IGSA-SR10005131

PATIENT
  Sex: Female
  Weight: 71 kg

DRUGS (2)
  1. ALBUMIN (HUMAN) [Suspect]
     Active Substance: ALBUMIN HUMAN
     Indication: HYPOALBUMINAEMIA
     Dosage: 12.5 UNK, BID
     Route: 042
     Dates: start: 20170727
  2. ALBUMIN (HUMAN) [Suspect]
     Active Substance: ALBUMIN HUMAN
     Dosage: UNK

REACTIONS (1)
  - Pyrexia [Recovered/Resolved]

NARRATIVE: CASE EVENT DATE: 20170727
